FAERS Safety Report 16076745 (Version 1)
Quarter: 2019Q2

REPORT INFORMATION
  Report Type: Spontaneous
  Country: US (occurrence: US)
  Receive Date: 20190314
  Receipt Date: 20190314
  Transmission Date: 20190711
  Serious: Yes (Other)
  Sender: FDA-Public Use
  Company Number: None

PATIENT
  Age: 65 Year
  Sex: Female
  Weight: 66.15 kg

DRUGS (10)
  1. LEVEMIR [Concomitant]
     Active Substance: INSULIN DETEMIR
  2. PRAVASTATIN. [Concomitant]
     Active Substance: PRAVASTATIN
  3. GABAPENTIN. [Concomitant]
     Active Substance: GABAPENTIN
  4. ASPIRIN. [Concomitant]
     Active Substance: ASPIRIN
  5. LORSARTAN POTASSIUM AND AMLODIPINE BESYLATE [Suspect]
     Active Substance: AMLODIPINE\LOSARTAN POTASSIUM
     Indication: HYPERTENSION
     Dosage: ?          QUANTITY:1 TABLET(S);?
     Route: 048
  6. ARIMDEX [Concomitant]
  7. VISTARIL [Concomitant]
     Active Substance: HYDROXYZINE PAMOATE
  8. METFORMIN [Concomitant]
     Active Substance: METFORMIN HYDROCHLORIDE
  9. GLYBURIDE. [Concomitant]
     Active Substance: GLYBURIDE
  10. CALCIUM [Concomitant]
     Active Substance: CALCIUM

REACTIONS (1)
  - Breast mass [None]

NARRATIVE: CASE EVENT DATE: 20180215
